FAERS Safety Report 8514915-6 (Version None)
Quarter: 2012Q3

REPORT INFORMATION
  Report Type: 
  Country: None (occurrence: None)
  Receive Date: 20120717
  Receipt Date: 20120702
  Transmission Date: 20120928
  Serious: Yes (Hospitalization)
  Sender: FDA-Public Use
  Company Number: GB-ROCHE-1085940

PATIENT
  Sex: Female

DRUGS (2)
  1. NUTROPIN AQ [Suspect]
     Indication: OFF LABEL USE
  2. NUTROPIN AQ [Suspect]
     Indication: BRAIN NEOPLASM
     Dosage: FORM STRENGTH: 10 MG/ 2 ML
     Dates: start: 20120101

REACTIONS (8)
  - CARBON MONOXIDE POISONING [None]
  - INFLUENZA [None]
  - HEADACHE [None]
  - COUGH [None]
  - FATIGUE [None]
  - NECK PAIN [None]
  - DRUG DOSE OMISSION [None]
  - LETHARGY [None]
